FAERS Safety Report 6836033-5 (Version None)
Quarter: 2010Q3

REPORT INFORMATION
  Report Type: 
  Country: None (occurrence: None)
  Receive Date: 20100713
  Receipt Date: 20100705
  Transmission Date: 20110219
  Serious: Yes (Disabling)
  Sender: FDA-Public Use
  Company Number: B0659499A

PATIENT
  Sex: Male
  Weight: 67 kg

DRUGS (4)
  1. WELLBUTRIN [Suspect]
     Indication: DEPRESSION
     Dosage: 150MG PER DAY
     Route: 065
     Dates: start: 20090801, end: 20100601
  2. SERLAIN [Concomitant]
     Indication: DEPRESSION
     Dates: start: 20090801, end: 20100601
  3. UNKNOWN DRUG [Concomitant]
     Indication: ORTHOSTATIC HYPOTENSION
  4. BISOPROLOL [Concomitant]
     Dates: start: 20090801

REACTIONS (3)
  - DIZZINESS [None]
  - NAUSEA [None]
  - NYSTAGMUS [None]
